FAERS Safety Report 8986503 (Version 2)
Quarter: 2013Q1

REPORT INFORMATION
  Report Type: Report from Study
  Country: CA (occurrence: CA)
  Receive Date: 20121227
  Receipt Date: 20130211
  Transmission Date: 20140127
  Serious: Yes (Hospitalization, Other)
  Sender: FDA-Public Use
  Company Number: CA-JNJFOC-20121209817

PATIENT
  Age: 67 Year
  Sex: Male
  Weight: 78.8 kg

DRUGS (16)
  1. REMICADE [Suspect]
     Indication: RHEUMATOID ARTHRITIS
     Route: 042
     Dates: start: 20080205
  2. REMICADE [Suspect]
     Indication: RHEUMATOID ARTHRITIS
     Route: 042
     Dates: start: 20080327
  3. LIPIDIL [Concomitant]
     Route: 065
  4. METOPROLOL [Concomitant]
     Route: 065
  5. HYDROXYCHLOROQUINE [Concomitant]
     Route: 065
  6. CELEBREX [Concomitant]
     Route: 065
  7. ALTACE [Concomitant]
     Route: 065
  8. METHOTREXATE [Concomitant]
     Route: 065
  9. TYLENOL3 [Concomitant]
     Route: 065
  10. METFORMIN [Concomitant]
     Route: 065
  11. RAMIPRIL [Concomitant]
     Route: 065
  12. ACETYL SALICYLIC ACID [Concomitant]
     Route: 065
  13. FOLIC ACID [Concomitant]
     Route: 065
  14. NOVO RAMIPRIL [Concomitant]
     Route: 065
  15. CODEINE [Concomitant]
     Route: 065
  16. ACETAMINOPHEN [Concomitant]
     Route: 065

REACTIONS (2)
  - Bursal operation [Not Recovered/Not Resolved]
  - Postoperative abscess [Unknown]
